FAERS Safety Report 9323324 (Version 2)
Quarter: 2014Q1

REPORT INFORMATION
  Report Type: Spontaneous
  Country: US (occurrence: US)
  Receive Date: 20130603
  Receipt Date: 20140311
  Transmission Date: 20141002
  Serious: Yes (Hospitalization)
  Sender: FDA-Public Use
  Company Number: US-B.I. PHARMACEUTICALS,INC./RIDGEFIELD-2013-BI-14926BP

PATIENT
  Age: 71 Year
  Sex: Male
  Weight: 91.63 kg

DRUGS (8)
  1. PRADAXA [Suspect]
     Indication: ATRIAL FIBRILLATION
     Dosage: 300 MG
     Route: 048
     Dates: end: 20120215
  2. ASPIRIN [Suspect]
     Indication: ARTHRITIS
     Dosage: 325 MG
     Route: 065
     Dates: start: 201011, end: 20120215
  3. MULTIVITAMINS [Concomitant]
     Route: 065
  4. LASIX [Concomitant]
     Route: 065
  5. COREG [Concomitant]
     Dosage: 12.5 MG
     Route: 048
     Dates: start: 201105
  6. GLUCOSAMINE-CHONDROITIN-VITAMIN C-MN [Concomitant]
     Route: 065
  7. LIPITOR [Concomitant]
     Dosage: 40 MG
     Route: 048
     Dates: start: 2000
  8. COLACE [Concomitant]
     Dosage: 100 MG
     Route: 065

REACTIONS (2)
  - Gastrointestinal haemorrhage [Unknown]
  - Haemorrhagic anaemia [Unknown]
